FAERS Safety Report 8489675-8 (Version None)
Quarter: 2012Q3

REPORT INFORMATION
  Report Type: 
  Country: None (occurrence: None)
  Receive Date: 20120705
  Receipt Date: 20120622
  Transmission Date: 20120928
  Serious: Yes (Hospitalization)
  Sender: FDA-Public Use
  Company Number: US-GLAXOSMITHKLINE-A0881349A

PATIENT
  Age: 46 Year
  Sex: Male
  Weight: 152.3 kg

DRUGS (9)
  1. AVANDIA [Suspect]
     Indication: TYPE 2 DIABETES MELLITUS
     Dosage: 8MG PER DAY
     Route: 048
     Dates: start: 20000101, end: 20020101
  2. CELEBREX [Concomitant]
  3. GLYBURIDE [Concomitant]
  4. LIPITOR [Concomitant]
  5. PLETAL [Concomitant]
  6. PRINIVIL [Concomitant]
  7. PRAVACHOL [Concomitant]
  8. GLUCOPHAGE [Concomitant]
  9. ATENOLOL [Concomitant]

REACTIONS (3)
  - CORONARY ARTERY DISEASE [None]
  - ATRIAL FIBRILLATION [None]
  - CARDIAC FAILURE CONGESTIVE [None]
